FAERS Safety Report 9618095 (Version 4)
Quarter: 2014Q3

REPORT INFORMATION
  Report Type: Report from Study
  Country: JP (occurrence: JP)
  Receive Date: 20131013
  Receipt Date: 20140819
  Transmission Date: 20150326
  Serious: Yes (Other)
  Sender: FDA-Public Use
  Company Number: PHHY2013JP111529

PATIENT
  Age: 36 Year
  Sex: Female

DRUGS (27)
  1. CLOZARIL [Suspect]
     Active Substance: CLOZAPINE
     Dosage: 75 MG DAILY
     Route: 048
     Dates: start: 20120919, end: 20120920
  2. CLOZARIL [Suspect]
     Active Substance: CLOZAPINE
     Dosage: 500 MG DAILY
     Route: 048
     Dates: start: 20130130, end: 20130205
  3. TEGRETOL [Concomitant]
     Active Substance: CARBAMAZEPINE
     Indication: SCHIZOPHRENIA, PARANOID TYPE
     Dosage: 100 MG
     Route: 048
     Dates: start: 20130307
  4. CLOZARIL [Suspect]
     Active Substance: CLOZAPINE
     Dosage: 200 MG DAILY
     Route: 048
     Dates: start: 20121002, end: 20121016
  5. CLOZARIL [Suspect]
     Active Substance: CLOZAPINE
     Dosage: 475 MG DAILY
     Route: 048
     Dates: start: 20130123, end: 20130129
  6. CERCINE [Concomitant]
     Active Substance: DIAZEPAM
     Indication: SCHIZOPHRENIA, PARANOID TYPE
     Dosage: 10 MG
     Route: 048
     Dates: start: 20121025
  7. CLOZARIL [Suspect]
     Active Substance: CLOZAPINE
     Dosage: 25 MG DAILY
     Route: 048
     Dates: start: 20120913, end: 20120914
  8. CLOZARIL [Suspect]
     Active Substance: CLOZAPINE
     Dosage: 50 MG DAILY
     Route: 048
     Dates: start: 20120915, end: 20120918
  9. CLOZARIL [Suspect]
     Active Substance: CLOZAPINE
     Dosage: 325 MG DAILY
     Route: 048
     Dates: start: 20121205, end: 20121211
  10. CLOZARIL [Suspect]
     Active Substance: CLOZAPINE
     Dosage: 375 MG DAILY
     Route: 048
     Dates: start: 20121219, end: 20130104
  11. CLOZARIL [Suspect]
     Active Substance: CLOZAPINE
     Dosage: 600 MG DAILY
     Route: 048
     Dates: start: 20130220, end: 20130305
  12. CLOZARIL [Suspect]
     Active Substance: CLOZAPINE
     Dosage: 100 MG DAILY
     Route: 048
     Dates: start: 20120921, end: 20120922
  13. CLOZARIL [Suspect]
     Active Substance: CLOZAPINE
     Dosage: 175 MG DAILY
     Route: 048
     Dates: start: 20120929, end: 20121001
  14. CLOZARIL [Suspect]
     Active Substance: CLOZAPINE
     Dosage: 550 MG DAILY
     Route: 048
     Dates: start: 20130213, end: 20130219
  15. CLOZARIL [Suspect]
     Active Substance: CLOZAPINE
     Dosage: 150 MG DAILY
     Route: 048
     Dates: start: 20120926, end: 20120928
  16. CLOZARIL [Suspect]
     Active Substance: CLOZAPINE
     Dosage: 450 MG DAILY
     Route: 048
     Dates: start: 20130116, end: 20130122
  17. LIMAS [Concomitant]
     Active Substance: LITHIUM CARBONATE
     Indication: PROPHYLAXIS
     Dosage: 800 MG
     Route: 048
     Dates: start: 20120911
  18. CLOZARIL [Suspect]
     Active Substance: CLOZAPINE
     Indication: SCHIZOPHRENIA, PARANOID TYPE
     Dosage: 12.5 MG DAILY
     Route: 048
     Dates: start: 20120912, end: 20120912
  19. CLOZARIL [Suspect]
     Active Substance: CLOZAPINE
     Dosage: 300 MG DAILY
     Route: 048
     Dates: start: 20121024, end: 20121204
  20. CLOZARIL [Suspect]
     Active Substance: CLOZAPINE
     Dosage: 400 MG DAILY
     Route: 048
     Dates: start: 20130105, end: 20130108
  21. CLOZARIL [Suspect]
     Active Substance: CLOZAPINE
     Dosage: 425 MG DAILY
     Route: 048
     Dates: start: 20130109, end: 20130115
  22. CLOZARIL [Suspect]
     Active Substance: CLOZAPINE
     Dosage: 525 MG DAILY
     Route: 048
     Dates: start: 20130206, end: 20130212
  23. TAKEPRON [Concomitant]
     Active Substance: LANSOPRAZOLE
     Dosage: 30 MG
     Route: 048
     Dates: start: 20121108
  24. CLOZARIL [Suspect]
     Active Substance: CLOZAPINE
     Dosage: 125 MG DAILY
     Route: 048
     Dates: start: 20120923, end: 20120925
  25. CLOZARIL [Suspect]
     Active Substance: CLOZAPINE
     Dosage: 250 MG DAILY
     Route: 048
     Dates: start: 20121017, end: 20121023
  26. CLOZARIL [Suspect]
     Active Substance: CLOZAPINE
     Dosage: 350 MG DAILY
     Route: 048
     Dates: start: 20121212, end: 20121218
  27. CLOZARIL [Suspect]
     Active Substance: CLOZAPINE
     Dosage: 500 MG DAILY
     Route: 048
     Dates: start: 20130306

REACTIONS (9)
  - Blood pressure diastolic abnormal [Unknown]
  - Blood glucose decreased [Unknown]
  - Tremor [Not Recovered/Not Resolved]
  - Monocyte count decreased [Unknown]
  - Neutrophil count increased [Unknown]
  - Electrocardiogram QT prolonged [Recovered/Resolved]
  - Heart rate increased [Unknown]
  - Blood pressure systolic abnormal [Unknown]
  - Lymphocyte count decreased [Unknown]

NARRATIVE: CASE EVENT DATE: 201210
